FAERS Safety Report 6774148-0 (Version None)
Quarter: 2010Q2

REPORT INFORMATION
  Report Type: 
  Country: None (occurrence: None)
  Receive Date: 20100616
  Receipt Date: 20100616
  Transmission Date: 20101027
  Serious: No
  Sender: FDA-Public Use
  Company Number: None

PATIENT
  Sex: Female
  Weight: 72.5755 kg

DRUGS (2)
  1. AMLODIPINE [Suspect]
     Indication: HYPERTENSION
     Dosage: 10MG ONE DAILY PO
     Route: 048
     Dates: start: 20100601, end: 20100605
  2. METOPROLOL 25MG [Suspect]
     Indication: ARRHYTHMIA
     Dosage: 25MG ONE DAILY PO
     Route: 048

REACTIONS (2)
  - OEDEMA PERIPHERAL [None]
  - PRODUCT SUBSTITUTION ISSUE [None]
